FAERS Safety Report 9828107 (Version 2)
Quarter: 2015Q3

REPORT INFORMATION
  Report Type: Spontaneous
  Country: US (occurrence: US)
  Receive Date: 20140117
  Receipt Date: 20150722
  Transmission Date: 20151125
  Serious: No
  Sender: FDA-Public Use
  Company Number: US-GILEAD-2010-0032714

PATIENT
  Age: 31 Year
  Sex: Male

DRUGS (7)
  1. SUSTIVA [Suspect]
     Active Substance: EFAVIRENZ
  2. EPSICON [Concomitant]
  3. DEPAKOTE [Concomitant]
     Active Substance: DIVALPROEX SODIUM
  4. LYRICA [Concomitant]
     Active Substance: PREGABALIN
  5. ATRIPLA [Suspect]
     Active Substance: EFAVIRENZ\EMTRICITABINE\TENOFOVIR DISOPROXIL FUMARATE
     Dates: start: 20100903
  6. MEDICAL MARIJUANA [Concomitant]
     Active Substance: CANNABIS SATIVA SUBSP. INDICA TOP
  7. VSL#3 [Concomitant]
     Active Substance: PROBIOTICS NOS

REACTIONS (4)
  - Dysarthria [Unknown]
  - Anxiety [Unknown]
  - Tremor [Unknown]
  - Gait disturbance [Unknown]
